FAERS Safety Report 21680697 (Version 1)
Quarter: 2022Q4

REPORT INFORMATION
  Report Type: Spontaneous
  Country: US (occurrence: US)
  Receive Date: 20221205
  Receipt Date: 20221205
  Transmission Date: 20230113
  Serious: Yes (Hospitalization, Other)
  Sender: FDA-Public Use
  Company Number: US-CIPLA LTD.-2022US06981

PATIENT
  Sex: Male

DRUGS (1)
  1. WARFARIN [Suspect]
     Active Substance: WARFARIN
     Indication: Embolism venous
     Dosage: UNK
     Route: 065

REACTIONS (13)
  - Deep vein thrombosis [Recovered/Resolved]
  - Portal vein thrombosis [Recovered/Resolved]
  - Mesenteric vein thrombosis [Recovered/Resolved]
  - Splenic vein thrombosis [Recovered/Resolved]
  - International normalised ratio fluctuation [Recovered/Resolved]
  - Varices oesophageal [Recovered/Resolved]
  - Anticoagulation drug level below therapeutic [Recovered/Resolved]
  - Spinal cord infarction [Recovered/Resolved]
  - Portal hypertension [Recovered/Resolved]
  - Shock haemorrhagic [Recovered/Resolved]
  - Cardiac arrest [Recovered/Resolved]
  - Brain injury [Recovered/Resolved]
  - Gastrointestinal haemorrhage [Recovered/Resolved]

NARRATIVE: CASE EVENT DATE: 20130101
